FAERS Safety Report 8212030-2 (Version None)
Quarter: 2012Q1

REPORT INFORMATION
  Report Type: 
  Country: None (occurrence: None)
  Receive Date: 20120315
  Receipt Date: 20120303
  Transmission Date: 20120608
  Serious: Yes (Other)
  Sender: FDA-Public Use
  Company Number: ES-FRI-1000029032

PATIENT
  Age: 68 Year
  Sex: Male
  Weight: 80 kg

DRUGS (2)
  1. ROFLUMILAST [Suspect]
     Indication: CHRONIC OBSTRUCTIVE PULMONARY DISEASE
     Dosage: 1000 MCG
     Route: 048
     Dates: start: 20120227, end: 20120301
  2. INHALATORS [Concomitant]
     Route: 055

REACTIONS (5)
  - ANXIETY [None]
  - TACHYCARDIA [None]
  - TREMOR [None]
  - OVERDOSE [None]
  - DECREASED APPETITE [None]
